FAERS Safety Report 11753714 (Version 1)
Quarter: 2015Q4

REPORT INFORMATION
  Report Type: Spontaneous
  Country: US (occurrence: US)
  Receive Date: 20151119
  Receipt Date: 20151119
  Transmission Date: 20160304
  Serious: No
  Sender: FDA-Public Use
  Company Number: US-PFIZER INC-2015380243

PATIENT

DRUGS (2)
  1. SAVELLA [Concomitant]
     Active Substance: MILNACIPRAN HYDROCHLORIDE
  2. NEURONTIN [Suspect]
     Active Substance: GABAPENTIN
     Indication: BREAKTHROUGH PAIN
     Dosage: UNK (1800, TWO TO THREE TIMES A DAY)

REACTIONS (2)
  - Overdose [Unknown]
  - Weight increased [Unknown]
